FAERS Safety Report 22522524 (Version 1)
Quarter: 2023Q2

REPORT INFORMATION
  Report Type: Spontaneous
  Country: PT (occurrence: PT)
  Receive Date: 20230605
  Receipt Date: 20230605
  Transmission Date: 20230722
  Serious: Yes (Other)
  Sender: FDA-Public Use
  Company Number: PT-002147023-NVSC2023PT124364

PATIENT
  Age: 35 Year
  Sex: Female

DRUGS (6)
  1. OCTREOTIDE [Suspect]
     Active Substance: OCTREOTIDE
     Indication: Product used for unknown indication
     Dosage: 30 MG, Q4W
     Route: 030
     Dates: start: 202104
  2. OCTREOTIDE [Suspect]
     Active Substance: OCTREOTIDE
  3. OCTREOTIDE [Suspect]
     Active Substance: OCTREOTIDE
  4. ZOLEDRONIC ACID [Concomitant]
     Active Substance: ZOLEDRONIC ACID
     Indication: Product used for unknown indication
     Dosage: 4 MG, Q4W
     Route: 042
     Dates: start: 202104
  5. MORPHINE [Concomitant]
     Active Substance: MORPHINE
     Indication: Product used for unknown indication
     Dosage: UNK
     Route: 065
     Dates: start: 20230427
  6. MEROPENEM [Concomitant]
     Active Substance: MEROPENEM
     Indication: Product used for unknown indication
     Dosage: UNK (FOR 8 DAYS)
     Route: 042

REACTIONS (19)
  - Neoplasm malignant [Unknown]
  - Metastases to bone [Unknown]
  - Cholecystitis acute [Unknown]
  - Metastases to liver [Unknown]
  - Peritonitis [Unknown]
  - Dilatation intrahepatic duct acquired [Unknown]
  - Hepatic lesion [Unknown]
  - Condition aggravated [Unknown]
  - Lymphadenopathy [Unknown]
  - Anaemia [Unknown]
  - Haemoglobin decreased [Unknown]
  - Leukocytosis [Unknown]
  - Neutrophilia [Unknown]
  - Blood bilirubin increased [Unknown]
  - C-reactive protein increased [Unknown]
  - Hepatomegaly [Unknown]
  - Abdominal pain upper [Unknown]
  - Nausea [Unknown]
  - Vomiting [Unknown]

NARRATIVE: CASE EVENT DATE: 20220202
